FAERS Safety Report 7894374-7 (Version None)
Quarter: 2011Q4

REPORT INFORMATION
  Report Type: 
  Country: None (occurrence: None)
  Receive Date: 20111104
  Receipt Date: 20111025
  Transmission Date: 20120403
  Serious: Yes (Hospitalization)
  Sender: FDA-Public Use
  Company Number: FR-ROCHE-1007124

PATIENT
  Sex: Female

DRUGS (4)
  1. AVASTIN [Suspect]
     Indication: BREAST CANCER
     Dates: start: 20110819, end: 20111014
  2. PACLITAXEL [Suspect]
     Indication: BREAST CANCER
     Dates: start: 20110421, end: 20110930
  3. XELODA [Suspect]
     Dates: start: 20111004
  4. XELODA [Suspect]
     Indication: BREAST CANCER
     Dates: start: 20110421, end: 20110421

REACTIONS (2)
  - CARDIAC ARREST [None]
  - DYSPNOEA [None]
